FAERS Safety Report 4998922-6 (Version None)
Quarter: 2006Q2

REPORT INFORMATION
  Report Type: 
  Country: None (occurrence: None)
  Receive Date: 20060510
  Receipt Date: 20051202
  Transmission Date: 20061013
  Serious: Yes (Hospitalization, Disabling)
  Sender: FDA-Public Use
  Company Number: US-MERCK-0512USA00506

PATIENT
  Age: 65 Year
  Sex: Male
  Weight: 86 kg

DRUGS (3)
  1. VIOXX [Suspect]
     Indication: OSTEOARTHRITIS
     Route: 048
     Dates: start: 20010426, end: 20040930
  2. VIOXX [Suspect]
     Route: 048
     Dates: start: 20010426, end: 20040930
  3. ADVIL [Concomitant]
     Route: 065

REACTIONS (9)
  - ABDOMINAL PAIN UPPER [None]
  - ATRIAL SEPTAL DEFECT [None]
  - CEREBROVASCULAR ACCIDENT [None]
  - DEPRESSION [None]
  - HEMIANOPIA HOMONYMOUS [None]
  - IRRITABLE BOWEL SYNDROME [None]
  - RHINITIS ALLERGIC [None]
  - VENTRICULAR EXTRASYSTOLES [None]
  - VISUAL DISTURBANCE [None]
